FAERS Safety Report 7275914-8 (Version None)
Quarter: 2011Q1

REPORT INFORMATION
  Report Type: 
  Country: None (occurrence: None)
  Receive Date: 20110204
  Receipt Date: 20110203
  Transmission Date: 20110831
  Serious: Yes (Death)
  Sender: FDA-Public Use
  Company Number: A0840573A

PATIENT
  Age: 39 Year
  Sex: Female

DRUGS (5)
  1. BUPROPION HCL [Suspect]
     Route: 048
  2. QUETIAPINE [Suspect]
     Route: 048
  3. TRAMADOL HCL [Suspect]
  4. PHENOBARBITAL [Suspect]
     Route: 048
  5. KEPPRA [Suspect]
     Route: 048

REACTIONS (2)
  - DEATH [None]
  - MULTIPLE DRUG OVERDOSE INTENTIONAL [None]
